FAERS Safety Report 7631491 (Version 7)
Quarter: 2013Q3

REPORT INFORMATION
  Report Type: Spontaneous
  Country: US (occurrence: US)
  Receive Date: 20101015
  Receipt Date: 20130816
  Transmission Date: 20140515
  Serious: Yes (Hospitalization, Disabling, Other)
  Sender: FDA-Public Use
  Company Number: US-009507513-1010USA01319

PATIENT
  Sex: Female
  Weight: 61 kg

DRUGS (4)
  1. FOSAMAX [Suspect]
     Indication: OSTEOPOROSIS
     Dosage: 70 MG, UNK
     Route: 048
     Dates: start: 2002, end: 2009
  2. FOSAMAX [Suspect]
     Dosage: 10MG,QD
     Route: 048
     Dates: start: 199612
  3. FOSAMAX [Suspect]
     Route: 048
     Dates: start: 20080705, end: 200907
  4. ZOCOR [Concomitant]
     Dosage: 20 MG, HS
     Route: 048

REACTIONS (33)
  - Femur fracture [Unknown]
  - Intramedullary rod insertion [Unknown]
  - Low turnover osteopathy [Not Recovered/Not Resolved]
  - Stress fracture [Not Recovered/Not Resolved]
  - Fall [Unknown]
  - Haemoglobin decreased [Unknown]
  - Fascial hernia [Unknown]
  - Breast disorder [Unknown]
  - Osteoporosis [Not Recovered/Not Resolved]
  - Femur fracture [Not Recovered/Not Resolved]
  - Hypertension [Unknown]
  - Hypothyroidism [Unknown]
  - Hormone level abnormal [Unknown]
  - Foot fracture [Recovering/Resolving]
  - Hypertonic bladder [Unknown]
  - Nail dystrophy [Unknown]
  - Herpes zoster [Unknown]
  - Sinus bradycardia [Unknown]
  - Arterial disorder [Unknown]
  - Bundle branch block left [Unknown]
  - Left ventricular hypertrophy [Unknown]
  - Adverse drug reaction [Unknown]
  - Oral disorder [Unknown]
  - Diverticulum [Unknown]
  - Umbilical hernia [Unknown]
  - Liver disorder [Unknown]
  - Pelvic adhesions [Unknown]
  - Osteopenia [Unknown]
  - Ovarian cyst [Unknown]
  - Oophorectomy [Unknown]
  - Salpingectomy [Unknown]
  - Pain in extremity [Unknown]
  - Pain in extremity [Unknown]
